FAERS Safety Report 26077948 (Version 3)
Quarter: 2025Q4

REPORT INFORMATION
  Report Type: Spontaneous
  Country: US (occurrence: US)
  Receive Date: 20251122
  Receipt Date: 20251219
  Transmission Date: 20260117
  Serious: Yes (Hospitalization, Other)
  Sender: MDD OPERATIONS
  Company Number: US-MDD US Operations-MDD202509-003811

PATIENT
  Age: 72 Year
  Sex: Male
  Weight: 113.39 kg

DRUGS (7)
  1. ONAPGO [Suspect]
     Active Substance: APOMORPHINE HYDROCHLORIDE
     Indication: Parkinson^s disease
     Dosage: 3.0 MG PER HOUR; PUMP SERIAL NUMBER: AJ1098.24 AND EXPIRY DATE : JUL 2025
     Dates: start: 20250822
  2. ONAPGO [Suspect]
     Active Substance: APOMORPHINE HYDROCHLORIDE
     Indication: Dyskinesia
     Dosage: DOSE INCREASED
     Dates: start: 20250917
  3. ONAPGO [Suspect]
     Active Substance: APOMORPHINE HYDROCHLORIDE
     Indication: On and off phenomenon
     Dosage: FOR 16 HOURS, ALSO PRESCRIBED WITH 3 EXTRA DOSES IN A DAY AT 1MG PER HOUR
     Dates: start: 202509
  4. ONAPGO [Suspect]
     Active Substance: APOMORPHINE HYDROCHLORIDE
     Dosage: 4MG PER HOUR WITH 3 EXTRA DOSES AT 1MG/HOUR, FOR 16 HOURS
     Dates: start: 2025
  5. ONAPGO [Suspect]
     Active Substance: APOMORPHINE HYDROCHLORIDE
     Dosage: 98MG PER DAY; INFUSE CONTENTS OF 1 CARTRIDGE A DAY UNDER THE SKIN FOR 16 HOURS OR LESS EACH DAY CONT
     Dates: start: 202507
  6. ONAPGO [Suspect]
     Active Substance: APOMORPHINE HYDROCHLORIDE
     Dosage: AS ORDERED
     Route: 030
  7. CREXONT [Concomitant]
     Active Substance: CARBIDOPA\LEVODOPA
     Dosage: NOT PROVIDED

REACTIONS (15)
  - Seizure [Recovered/Resolved]
  - Hallucination [Recovered/Resolved]
  - Contusion [Not Recovered/Not Resolved]
  - Dermatitis contact [Unknown]
  - Urticaria [Unknown]
  - Screaming [Recovered/Resolved]
  - Nightmare [Recovered/Resolved]
  - Injection site pruritus [Not Recovered/Not Resolved]
  - Fall [Not Recovered/Not Resolved]
  - Pruritus [Unknown]
  - Injection site erythema [Unknown]
  - Device breakage [Unknown]
  - Device malfunction [Unknown]
  - Therapy interrupted [Unknown]
  - Incorrect route of product administration [Unknown]

NARRATIVE: CASE EVENT DATE: 20250926
